FAERS Safety Report 9295254 (Version 9)
Quarter: 2014Q3

REPORT INFORMATION
  Report Type: Report from Study
  Country: CA (occurrence: CA)
  Receive Date: 20130517
  Receipt Date: 20140804
  Transmission Date: 20150326
  Serious: Yes (Other)
  Sender: FDA-Public Use
  Company Number: PHHY2013CA047061

PATIENT
  Age: 63 Year
  Sex: Female

DRUGS (3)
  1. TASIGNA [Suspect]
     Active Substance: NILOTINIB
     Indication: CHRONIC MYELOID LEUKAEMIA
     Dosage: 300 MG, BID
     Route: 048
     Dates: start: 20130425
  2. VITAMIN D3 [Concomitant]
     Active Substance: CHOLECALCIFEROL
  3. TASIGNA [Suspect]
     Active Substance: NILOTINIB
     Dosage: 150 MG, BID
     Route: 048

REACTIONS (17)
  - Thyroid disorder [Not Recovered/Not Resolved]
  - Diarrhoea [Recovered/Resolved]
  - Nail growth abnormal [Unknown]
  - Alopecia [Not Recovered/Not Resolved]
  - Haematochezia [Unknown]
  - Fatigue [Unknown]
  - Transplant rejection [Unknown]
  - Palpitations [Recovering/Resolving]
  - Joint effusion [Unknown]
  - White blood cell count decreased [Unknown]
  - Dyspnoea [Recovering/Resolving]
  - Onychomycosis [Unknown]
  - Renal failure [Unknown]
  - Muscle spasms [Not Recovered/Not Resolved]
  - Proctalgia [Unknown]
  - Viral infection [Unknown]
  - Insomnia [Unknown]

NARRATIVE: CASE EVENT DATE: 201311
